FAERS Safety Report 9147324 (Version 1)
Quarter: 2013Q1

REPORT INFORMATION
  Report Type: Spontaneous
  Country: GB (occurrence: None)
  Receive Date: 20130226
  Receipt Date: 20130226
  Transmission Date: 20140127
  Serious: Yes (Death)
  Sender: FDA-Public Use
  Company Number: 1605406

PATIENT
  Age: 60 Year
  Sex: Male

DRUGS (31)
  1. GEMCITABINE HYDROCHLORIDE [Suspect]
     Indication: NON-SMALL CELL LUNG CANCER STAGE IIIA
     Dosage: 2500  MG  MILLIGRAM (S),  UNKNOWN,  ?INTRAVENOUS  (NOT OTHERWISE SPECIFIED)?08/06/2012  -  10/15/2012  (70 DAYS)
     Route: 042
     Dates: start: 20120806, end: 20121015
  2. CARBOPLATIN [Concomitant]
  3. AMIODARONE [Concomitant]
  4. CARBOCISTEINE [Concomitant]
  5. LASOPRAZOLE [Concomitant]
  6. NAPROXEN [Concomitant]
  7. (THERAPEUTIC  RADIOPHARMACEUTICALS) [Concomitant]
  8. TIOTROPIUM [Concomitant]
  9. SALBUTAMOL [Concomitant]
  10. MORPHINE SULFATE [Concomitant]
  11. CO-CODAMOL [Concomitant]
  12. NYSTATIN [Concomitant]
  13. CALCIUM CARBONATE [Concomitant]
  14. CO-AMOXICLAV [Concomitant]
  15. (DALTEPARIN) [Concomitant]
  16. FUROSEMIDE [Concomitant]
  17. SODIUM CHLORIDE [Concomitant]
  18. DIAMORPHINE [Concomitant]
  19. PIPERACILLIN  +  TAZOBACTAM) [Concomitant]
  20. CASPOFUNGIN [Concomitant]
  21. CLARITHROMYCIN [Concomitant]
  22. CO-TRIMOXAZOLE [Concomitant]
  23. ACYCLOVIR [Concomitant]
  24. ESOMEPRAZOLE [Concomitant]
  25. HYDROCORTISONE [Concomitant]
  26. MEROPENEM [Concomitant]
  27. PROPOFOL [Concomitant]
  28. FENTANYL [Concomitant]
  29. MIDAZOLAM [Concomitant]
  30. ESOPROSTENOL [Concomitant]
  31. NORADRENALINE [Concomitant]

REACTIONS (17)
  - Pulmonary fibrosis [None]
  - Lower respiratory tract infection [None]
  - Haemoptysis [None]
  - Pneumonia [None]
  - Renal failure acute [None]
  - Thrombocytopenia [None]
  - Respiratory failure [None]
  - Acute respiratory distress syndrome [None]
  - Continuous haemodiafiltration [None]
  - Haemoglobin decreased [None]
  - Haematocrit decreased [None]
  - Red blood cell count decreased [None]
  - Blood bilirubin increased [None]
  - Alanine aminotransferase increased [None]
  - Gamma-glutamyltransferase increased [None]
  - Blood alkaline phosphatase increased [None]
  - Blood glucose increased [None]
